FAERS Safety Report 11750264 (Version 2)
Quarter: 2015Q4

REPORT INFORMATION
  Report Type: Spontaneous
  Country: BR (occurrence: BR)
  Receive Date: 20151118
  Receipt Date: 20151201
  Transmission Date: 20160304
  Serious: Yes (Hospitalization, Other)
  Sender: FDA-Public Use
  Company Number: BR-FERRINGPH-2015FE03791

PATIENT
  Age: 8 Year
  Sex: Female

DRUGS (12)
  1. OMEPRAZOLE. [Concomitant]
     Active Substance: OMEPRAZOLE
     Indication: PROPHYLAXIS
     Dosage: UNK
     Route: 048
     Dates: start: 2013
  2. DDAVP [Suspect]
     Active Substance: DESMOPRESSIN ACETATE
     Dosage: 0.3 ML, DAILY, LESS THAN ONE WEEK
     Route: 045
     Dates: start: 20130724, end: 2013
  3. DDAVP [Suspect]
     Active Substance: DESMOPRESSIN ACETATE
     Indication: DIABETES INSIPIDUS
     Dosage: 0.25 ML, DAILY
     Route: 045
     Dates: start: 201307, end: 2014
  4. DDAVP [Suspect]
     Active Substance: DESMOPRESSIN ACETATE
     Dosage: 0.15 ML, DAILY
     Route: 045
  5. SIRDALUD [Concomitant]
     Active Substance: TIZANIDINE
     Indication: MUSCLE RELAXANT THERAPY
     Dosage: 8 MG, DAILY
     Route: 048
     Dates: start: 2013
  6. RANITIDINE [Concomitant]
     Active Substance: RANITIDINE\RANITIDINE HYDROCHLORIDE
     Indication: PROPHYLAXIS
     Dosage: UNK
     Route: 048
     Dates: start: 2013
  7. DDAVP [Suspect]
     Active Substance: DESMOPRESSIN ACETATE
     Indication: DIABETES INSIPIDUS
     Dosage: 0.3 ML, DAILY
     Route: 045
     Dates: start: 20151024, end: 20151102
  8. DDAVP [Suspect]
     Active Substance: DESMOPRESSIN ACETATE
     Dosage: 0.3 ML, DAILY
     Route: 045
     Dates: start: 2014, end: 2014
  9. DDAVP [Suspect]
     Active Substance: DESMOPRESSIN ACETATE
     Dosage: 0.25 ML, DAILY
     Route: 045
     Dates: start: 2014, end: 20151023
  10. GARDENAL                           /00023201/ [Concomitant]
     Active Substance: PHENOBARBITAL
     Indication: SEIZURE
     Dosage: 50 MG, DAILY
     Route: 048
     Dates: start: 2013
  11. TEGRETOL [Concomitant]
     Active Substance: CARBAMAZEPINE
     Indication: PRODUCT USED FOR UNKNOWN INDICATION
     Dosage: 280 MG, DAILY
     Route: 048
     Dates: start: 2013
  12. DDAVP [Suspect]
     Active Substance: DESMOPRESSIN ACETATE
     Dosage: 0.25 ML, DAILY
     Route: 045
     Dates: start: 20151103

REACTIONS (11)
  - Meningitis [Recovered/Resolved]
  - Urinary tract infection [Not Recovered/Not Resolved]
  - Face oedema [Recovered/Resolved]
  - Drug ineffective [Recovered/Resolved]
  - Product formulation issue [None]
  - Hyponatraemia [Recovered/Resolved]
  - Polyuria [None]
  - Blister [Recovered/Resolved]
  - Face oedema [Recovered/Resolved]
  - Oxygen saturation decreased [None]
  - Dehydration [None]

NARRATIVE: CASE EVENT DATE: 20130725
